FAERS Safety Report 23083713 (Version 1)
Quarter: 2023Q4

REPORT INFORMATION
  Report Type: Spontaneous
  Country: US (occurrence: US)
  Receive Date: 20231019
  Receipt Date: 20231019
  Transmission Date: 20240109
  Serious: No
  Sender: FDA-Public Use
  Company Number: US-JNJFOC-20231040775

PATIENT
  Sex: Male

DRUGS (2)
  1. TALQUETAMAB [Suspect]
     Active Substance: TALQUETAMAB
     Indication: Product used for unknown indication
     Route: 065
  2. MEGACE [Concomitant]
     Active Substance: MEGESTROL ACETATE

REACTIONS (2)
  - Dysgeusia [Unknown]
  - Weight decreased [Unknown]
